FAERS Safety Report 8027726-5 (Version None)
Quarter: 2011Q4

REPORT INFORMATION
  Report Type: 
  Country: None (occurrence: None)
  Receive Date: 20111130
  Receipt Date: 20110808
  Transmission Date: 20120403
  Serious: Yes (Other)
  Sender: FDA-Public Use
  Company Number: US201002004008

PATIENT
  Sex: Female
  Weight: 117.9 kg

DRUGS (4)
  1. BYETTA [Suspect]
     Dates: start: 20070101, end: 20080501
  2. EXENATIDE, DISPOSABLE DEVICE (EXENATIDE PEN ) PEN,DISPOSABLE [Concomitant]
  3. METFORMIN HCL [Concomitant]
  4. METFORMIN HCL [Concomitant]

REACTIONS (1)
  - PANCREATITIS [None]
